FAERS Safety Report 19147157 (Version 1)
Quarter: 2021Q2

REPORT INFORMATION
  Report Type: Spontaneous
  Country: MX (occurrence: MX)
  Receive Date: 20210416
  Receipt Date: 20210416
  Transmission Date: 20210717
  Serious: Yes (Other)
  Sender: FDA-Public Use
  Company Number: MX-ALLERGAN-2115497US

PATIENT
  Sex: Male
  Weight: 2.25 kg

DRUGS (4)
  1. DEXAMETHASONE. [Suspect]
     Active Substance: DEXAMETHASONE
     Indication: EXPOSURE DURING PREGNANCY
     Route: 064
  2. URSODEOXYCHOLIC ACID UNK [Suspect]
     Active Substance: URSODIOL
     Indication: EXPOSURE DURING PREGNANCY
     Route: 064
  3. PROGESTERONE UNK [Suspect]
     Active Substance: PROGESTERONE
     Indication: EXPOSURE DURING PREGNANCY
     Route: 064
  4. INDOMETHACIN. [Suspect]
     Active Substance: INDOMETHACIN
     Indication: EXPOSURE DURING PREGNANCY
     Route: 064

REACTIONS (3)
  - Low birth weight baby [Unknown]
  - Foetal hypokinesia [Unknown]
  - Pregnancy [Unknown]
